FAERS Safety Report 21207295 (Version 1)
Quarter: 2022Q3

REPORT INFORMATION
  Report Type: Report from Study
  Country: GR (occurrence: GR)
  Receive Date: 20220812
  Receipt Date: 20220812
  Transmission Date: 20221027
  Serious: Yes (Hospitalization)
  Sender: FDA-Public Use
  Company Number: GR-ROCHE-1856006

PATIENT
  Age: 68 Year
  Sex: Female
  Weight: 98 kg

DRUGS (18)
  1. GEMCITABINE [Suspect]
     Active Substance: GEMCITABINE
     Indication: Breast cancer metastatic
     Dosage: FREQUENCY: OTHER MOST RECENT DOSE PRIOR TO THE EVENT: 03/JUL/2019, 2000MG,END DATE NASK
     Route: 065
     Dates: start: 20190510
  2. GEMCITABINE [Suspect]
     Active Substance: GEMCITABINE
     Dosage: FREQUENCY: OTHER MOST RECENT DOSE PRIOR TO THE EVENT: 28/AUG/2019, 1500MG, DURATION 29DAYS
     Route: 065
     Dates: start: 20190724, end: 20190821
  3. DOCETAXEL [Suspect]
     Active Substance: DOCETAXEL
     Indication: Breast cancer metastatic
     Dosage: MOST RECENT DOSE PRIOR TO THE EVENT: 17/NOV/2016, 160MG, FREQUENCY TIME 3WEEKS, DURATION 1DAYS
     Route: 065
     Dates: start: 20161025, end: 20161025
  4. DOCETAXEL [Suspect]
     Active Substance: DOCETAXEL
     Dosage: 75MG/KG, FREQUENCY TIME 3WEEKS, THERAPY END DATE NASK, PDF-11210000
     Route: 065
     Dates: start: 20161018
  5. CAPECITABINE [Suspect]
     Active Substance: CAPECITABINE
     Indication: Breast cancer metastatic
     Dosage: MOST RECENT DOSE PRIOR TO THE EVENT: 22/OCT/2018, 09/JUL/2018,FREQUENCY TIME 0.5DAYS, END DATE NASK,
     Dates: start: 20180618
  6. ADO-TRASTUZUMAB EMTANSINE [Suspect]
     Active Substance: ADO-TRASTUZUMAB EMTANSINE
     Indication: Breast cancer metastatic
     Dosage: MOST RECENT DOSE PRIOR TO AE 04/MAY/2018, 270MG, INFUSION, SOLUTION, FREQUENCY TIME 3WEEKS, THERAPY
     Route: 065
     Dates: start: 20170726
  7. PERTUZUMAB [Suspect]
     Active Substance: PERTUZUMAB
     Indication: Breast cancer metastatic
     Dosage: MOST RECENT DOSE PRIOR TO THE EVENT: 12/DEC/2016, INFUSION, SOLUTION, 840MG/KG, FREQUENCY TIME 3WEEK
     Route: 065
     Dates: start: 20161117, end: 20161117
  8. LAPATINIB [Suspect]
     Active Substance: LAPATINIB
     Indication: Breast cancer metastatic
     Dosage: MOST RECENT DOSE PRIOR TO THE EVENT: 09/JUL/2018,PDF-11210000, 1250MG, THERAPY END DATE NASK,FREQUEN
     Route: 065
     Dates: start: 20180618
  9. LAPATINIB [Suspect]
     Active Substance: LAPATINIB
     Dosage: MOST RECENT DOSE PRIOR TO THE EVENT: 14/NOV/2018,PDF-11210000, 1000MG, FREQUENCY TIME 1DAYS, DURATIO
     Route: 065
     Dates: start: 20180723, end: 20181113
  10. TRASTUZUMAB [Suspect]
     Active Substance: TRASTUZUMAB
     Indication: Breast cancer metastatic
     Dosage: 8MG/KG, FREQUENCY TIME 3WEEKS,PDF-10219000,END DATE NASK
     Route: 065
     Dates: start: 20161018
  11. TRASTUZUMAB [Suspect]
     Active Substance: TRASTUZUMAB
     Dosage: MOST RECENT DOSE PRIOR TO THE EVENT: 10/MAY/2019,INFUSION, SOLUTION, 780MG, FREQUENCY TIME 3WEEKS, D
     Dates: start: 20161025, end: 20161025
  12. FENTANYL [Concomitant]
     Active Substance: FENTANYL
     Indication: Product used for unknown indication
     Dates: start: 20161015
  13. FENTANYL [Concomitant]
     Active Substance: FENTANYL
     Dates: start: 20160615
  14. ZOMETA [Concomitant]
     Active Substance: ZOLEDRONIC ACID
     Indication: Product used for unknown indication
     Dosage: DURATION 961DAYS
     Dates: start: 20161018, end: 20190605
  15. CALCIUM CARBONATE\CHOLECALCIFEROL [Concomitant]
     Active Substance: CALCIUM CARBONATE\CHOLECALCIFEROL
     Indication: Product used for unknown indication
     Dates: start: 20171218
  16. ACETAMINOPHEN\CODEINE PHOSPHATE [Concomitant]
     Active Substance: ACETAMINOPHEN\CODEINE PHOSPHATE
     Indication: Product used for unknown indication
  17. LEVOTHYROXINE [Concomitant]
     Active Substance: LEVOTHYROXINE
     Indication: Product used for unknown indication
     Dates: start: 20090615
  18. LEVOTHYROXINE [Concomitant]
     Active Substance: LEVOTHYROXINE
     Dates: start: 20090615

REACTIONS (3)
  - Abdominal pain [Recovered/Resolved]
  - Febrile neutropenia [Recovered/Resolved]
  - Neutrophil count decreased [Unknown]

NARRATIVE: CASE EVENT DATE: 20161031
